FAERS Safety Report 5076018-5 (Version None)
Quarter: 2006Q3

REPORT INFORMATION
  Report Type: 
  Country: None (occurrence: None)
  Receive Date: 20060714
  Receipt Date: 20060428
  Transmission Date: 20061208
  Serious: No
  Sender: FDA-Public Use
  Company Number: 2006SP001917

PATIENT
  Age: 51 Year
  Sex: Female

DRUGS (5)
  1. LUNESTA [Suspect]
     Dosage: 3 MG;1X;ORAL
     Route: 048
     Dates: start: 20060427, end: 20060427
  2. ATENOLOL [Concomitant]
  3. ATACAND HCT [Concomitant]
  4. WELLBUTRIN SR [Concomitant]
  5. EFFEXOR XR [Concomitant]

REACTIONS (1)
  - DYSGEUSIA [None]
